FAERS Safety Report 9331150 (Version 3)
Quarter: 2013Q3

REPORT INFORMATION
  Report Type: Spontaneous
  Country: BR (occurrence: BR)
  Receive Date: 20130605
  Receipt Date: 20130923
  Transmission Date: 20140515
  Serious: Yes (Other)
  Sender: FDA-Public Use
  Company Number: BR-AMGEN-BRASP2013039340

PATIENT
  Age: 43 Year
  Sex: Female
  Weight: 79 kg

DRUGS (5)
  1. ENBREL [Suspect]
     Indication: RHEUMATOID ARTHRITIS
     Dosage: 50 MG, ONCE WEEKLY
     Route: 058
     Dates: start: 201302
  2. ARAVA [Concomitant]
     Dosage: UNK
  3. RIVOTRIL [Concomitant]
     Dosage: UNK
  4. VENLAFAXINE [Concomitant]
     Dosage: UNK
  5. HIDRION [Concomitant]
     Dosage: UNK

REACTIONS (4)
  - Immunodeficiency [Unknown]
  - Influenza [Recovered/Resolved]
  - Injection site pain [Unknown]
  - Injection site haematoma [Unknown]
